FAERS Safety Report 18345744 (Version 1)
Quarter: 2020Q4

REPORT INFORMATION
  Report Type: Spontaneous
  Country: CA (occurrence: CA)
  Receive Date: 20201005
  Receipt Date: 20201005
  Transmission Date: 20210114
  Serious: Yes (Hospitalization, Other)
  Sender: FDA-Public Use
  Company Number: CA-MYLANLABS-2020M1079714

PATIENT
  Age: 96 Year
  Sex: Female

DRUGS (36)
  1. METFORMIN [Suspect]
     Active Substance: METFORMIN HYDROCHLORIDE
     Dosage: UNK
     Route: 065
  2. QVAR [Suspect]
     Active Substance: BECLOMETHASONE DIPROPIONATE
     Dosage: UNK UNK, BID, 2 EVERY 1 DAYS
  3. QVAR [Suspect]
     Active Substance: BECLOMETHASONE DIPROPIONATE
     Dosage: UNK, QD, 1 EVERY 1 DAYS
     Route: 050
  4. MOGADON [Suspect]
     Active Substance: NITRAZEPAM
     Dosage: 5 MILLIGRAM
  5. OMNARIS [Suspect]
     Active Substance: CICLESONIDE
     Indication: PRODUCT USED FOR UNKNOWN INDICATION
     Dosage: UNK
     Route: 045
  6. TECTA [Suspect]
     Active Substance: PANTOPRAZOLE MAGNESIUM
     Indication: PRODUCT USED FOR UNKNOWN INDICATION
     Dosage: 40 MILLIGRAM, QD
     Route: 065
  7. ZOCOR [Concomitant]
     Active Substance: SIMVASTATIN
     Indication: PRODUCT USED FOR UNKNOWN INDICATION
     Dosage: UNK
     Route: 065
  8. SYNTHROID [Suspect]
     Active Substance: LEVOTHYROXINE SODIUM
     Indication: PRODUCT USED FOR UNKNOWN INDICATION
     Dosage: UNK
  9. METFORMIN [Suspect]
     Active Substance: METFORMIN HYDROCHLORIDE
     Dosage: UNK
     Route: 065
  10. ACLIDINIUM BROMIDE. [Suspect]
     Active Substance: ACLIDINIUM BROMIDE
     Indication: PRODUCT USED FOR UNKNOWN INDICATION
     Dosage: UNK
  11. GLUMETZA [Suspect]
     Active Substance: METFORMIN HYDROCHLORIDE
     Indication: PRODUCT USED FOR UNKNOWN INDICATION
     Dosage: UNK
  12. METFORMIN [Suspect]
     Active Substance: METFORMIN HYDROCHLORIDE
     Indication: PRODUCT USED FOR UNKNOWN INDICATION
     Dosage: UNK
     Route: 065
  13. BETAXOLOL HYDROCHLORIDE. [Suspect]
     Active Substance: BETAXOLOL HYDROCHLORIDE
     Indication: PRODUCT USED FOR UNKNOWN INDICATION
     Dosage: UNK
     Route: 065
  14. QVAR [Suspect]
     Active Substance: BECLOMETHASONE DIPROPIONATE
     Dosage: UNK, BID, 2 EVERY 1 DAYS
     Route: 050
  15. METFORMIN [Suspect]
     Active Substance: METFORMIN HYDROCHLORIDE
     Dosage: UNK
     Route: 065
  16. NITROGLYCERIN. [Suspect]
     Active Substance: NITROGLYCERIN
     Indication: PRODUCT USED FOR UNKNOWN INDICATION
     Dosage: UNK
     Route: 042
  17. PILOCARPINE HYDROCHLORIDE. [Suspect]
     Active Substance: PILOCARPINE HYDROCHLORIDE
     Indication: PRODUCT USED FOR UNKNOWN INDICATION
     Dosage: 40 MILLIGRAM, QD
     Route: 065
  18. XALATAN [Suspect]
     Active Substance: LATANOPROST
     Indication: PRODUCT USED FOR UNKNOWN INDICATION
     Dosage: UNK
     Route: 065
  19. LEVOTHYROXINE. [Concomitant]
     Active Substance: LEVOTHYROXINE
     Dosage: 0.125 MILLIGRAM, QD
     Route: 065
  20. SALBUTAMOL [Suspect]
     Active Substance: ALBUTEROL
     Indication: PRODUCT USED FOR UNKNOWN INDICATION
     Dosage: UNK
     Route: 065
  21. GLYCOPYRRONIUM BROMIDE [Suspect]
     Active Substance: GLYCOPYRRONIUM
     Indication: PRODUCT USED FOR UNKNOWN INDICATION
     Dosage: UNK
     Route: 050
  22. GLYCOPYRRONIUM BROMIDE W/INDACATEROL MALEATE [Suspect]
     Active Substance: GLYCOPYRROLATE\INDACATEROL MALEATE
     Indication: PRODUCT USED FOR UNKNOWN INDICATION
     Dosage: UNK
     Route: 042
  23. XALATAN [Suspect]
     Active Substance: LATANOPROST
     Dosage: UNK
     Route: 047
  24. ZOCOR [Concomitant]
     Active Substance: SIMVASTATIN
     Dosage: 20 MILLIGRAM
     Route: 065
  25. ACLIDINIUM BROMIDE. [Suspect]
     Active Substance: ACLIDINIUM BROMIDE
     Dosage: UNK
     Route: 045
  26. FORMOTEROL FUMARATE [Suspect]
     Active Substance: FORMOTEROL FUMARATE
     Indication: PRODUCT USED FOR UNKNOWN INDICATION
     Dosage: UNK, Q2D, 1 EVERY 2 DAYS
     Route: 050
  27. FORMOTEROL FUMARATE [Suspect]
     Active Substance: FORMOTEROL FUMARATE
     Dosage: UNK, BID,2 EVERY 1 DAYS
     Route: 045
  28. GLYCOPYRRONIUM BROMIDE [Suspect]
     Active Substance: GLYCOPYRRONIUM
     Dosage: UNK
     Route: 065
  29. NITROJECT [Suspect]
     Active Substance: NITROGLYCERIN
     Indication: PRODUCT USED FOR UNKNOWN INDICATION
     Dosage: UNK
     Route: 042
  30. QVAR [Suspect]
     Active Substance: BECLOMETHASONE DIPROPIONATE
     Indication: PRODUCT USED FOR UNKNOWN INDICATION
     Dosage: UNK UNK, BID, 2 EVERY 1 DAYS
     Route: 045
  31. METFORMIN [Suspect]
     Active Substance: METFORMIN HYDROCHLORIDE
     Dosage: UNK
     Route: 065
  32. ACLIDINIUM BROMIDE. [Suspect]
     Active Substance: ACLIDINIUM BROMIDE
     Dosage: UNK
     Route: 050
  33. FORMOTEROL FUMARATE [Suspect]
     Active Substance: FORMOTEROL FUMARATE
     Dosage: UNK
     Route: 050
  34. FORMOTEROL FUMARATE [Suspect]
     Active Substance: FORMOTEROL FUMARATE
     Dosage: UNK, Q2D, 1 EVERY 2 DAYS
     Route: 050
  35. MOGADON [Suspect]
     Active Substance: NITRAZEPAM
     Indication: PRODUCT USED FOR UNKNOWN INDICATION
     Dosage: UNK
  36. NUCALA [Suspect]
     Active Substance: MEPOLIZUMAB
     Indication: ASTHMA
     Dosage: 100 MILLIGRAM, QD
     Route: 042

REACTIONS (30)
  - Peripheral vascular disorder [Unknown]
  - Pulmonary embolism [Unknown]
  - Crepitations [Unknown]
  - Haemorrhage [Unknown]
  - Pulmonary congestion [Unknown]
  - Urinary retention [Unknown]
  - Wheezing [Unknown]
  - Tachycardia [Unknown]
  - Acute myocardial infarction [Unknown]
  - Cardiac failure congestive [Unknown]
  - Therapeutic product effect incomplete [Unknown]
  - Choking [Unknown]
  - Coronary artery disease [Unknown]
  - Limb injury [Unknown]
  - Oedema peripheral [Unknown]
  - Pulmonary oedema [Unknown]
  - Weight increased [Unknown]
  - Sputum discoloured [Unknown]
  - Transient ischaemic attack [Unknown]
  - Wound [Unknown]
  - Dizziness [Unknown]
  - Myocardial infarction [Unknown]
  - Asthma [Unknown]
  - Fall [Unknown]
  - Glaucoma [Unknown]
  - Productive cough [Unknown]
  - Chest discomfort [Unknown]
  - Adverse drug reaction [Unknown]
  - Cough [Unknown]
  - Dyspnoea [Unknown]
